FAERS Safety Report 7416797-2 (Version None)
Quarter: 2011Q2

REPORT INFORMATION
  Report Type: 
  Country: None (occurrence: None)
  Receive Date: 20110406
  Receipt Date: 20110321
  Transmission Date: 20111010
  Serious: Yes (Hospitalization)
  Sender: FDA-Public Use
  Company Number: LTI2011A00063

PATIENT
  Age: 85 Year
  Sex: Female

DRUGS (16)
  1. NEXIUM [Concomitant]
  2. TEMERIT (NEBIVOLOL) [Suspect]
     Indication: MYOCARDIAL INFARCTION
     Route: 048
     Dates: start: 20100920, end: 20101011
  3. LANSOPRAZOLE [Suspect]
     Indication: HERNIA
     Dosage: 30 MG (30 MG,1 D)
     Route: 048
     Dates: start: 20100810, end: 20100913
  4. LANSOPRAZOLE [Suspect]
     Indication: GASTRIC ULCER HAEMORRHAGE
     Dosage: 30 MG (30 MG,1 D)
     Route: 048
     Dates: start: 20100810, end: 20100913
  5. PRAVASTATIN SODIUM [Concomitant]
  6. LASIX [Concomitant]
  7. OFLOXACIN [Concomitant]
  8. FERROUS FUMARATE [Concomitant]
  9. BISOPROLOL FUMARATE [Suspect]
     Indication: MYOCARDIAL INFARCTION
     Dosage: 5 MG (2.5 MG,2 IN 1 D)
     Route: 048
     Dates: start: 20101011, end: 20101015
  10. BISOPROLOL FUMARATE [Suspect]
     Indication: MYOCARDIAL INFARCTION
     Dosage: 5 MG (2.5 MG,2 IN 1 D)
     Route: 048
     Dates: start: 20100810, end: 20100920
  11. FRAZIPARINE (NADROPARIN CALCIUM) [Concomitant]
  12. KARDEGIC (ACETYLSALICYLATE LYSINE) [Suspect]
     Indication: MYOCARDIAL INFARCTION
     Dosage: 160 MG (160 MG,1 IN 1 D)
     Route: 048
     Dates: start: 20101014
  13. KARDEGIC (ACETYLSALICYLATE LYSINE) [Suspect]
     Indication: MYOCARDIAL INFARCTION
     Dosage: 160 MG (160 MG,1 IN 1 D)
     Route: 048
     Dates: start: 20100810, end: 20100913
  14. KARDEGIC (ACETYLSALICYLATE LYSINE) [Suspect]
     Indication: MYOCARDIAL INFARCTION
     Dosage: 160 MG (160 MG,1 IN 1 D)
     Route: 048
     Dates: start: 20100926, end: 20100930
  15. PLAVIX [Suspect]
     Indication: MYOCARDIAL INFARCTION
     Dosage: 75 MG (75 MG,1 IN 1D)
     Route: 048
     Dates: start: 20100810, end: 20100913
  16. PLAVIX [Suspect]
     Indication: MYOCARDIAL INFARCTION
     Dosage: 75 MG (75 MG,1 IN 1D)
     Route: 048
     Dates: start: 20101009, end: 20101015

REACTIONS (1)
  - TOXIC SKIN ERUPTION [None]
